FAERS Safety Report 7596770-4 (Version None)
Quarter: 2011Q3

REPORT INFORMATION
  Report Type: 
  Country: None (occurrence: None)
  Receive Date: 20110708
  Receipt Date: 20110705
  Transmission Date: 20111222
  Serious: Yes (Other)
  Sender: FDA-Public Use
  Company Number: US-PFIZER INC-2011150529

PATIENT
  Sex: Male
  Weight: 84 kg

DRUGS (12)
  1. LYRICA [Suspect]
     Indication: ARTHRALGIA
     Dosage: 75 MG, 2X/DAY
     Route: 048
     Dates: start: 20110617, end: 20110624
  2. OXYBUTYNIN [Concomitant]
     Indication: PROSTATOMEGALY
  3. OXYBUTYNIN [Concomitant]
     Indication: BLADDER DISORDER
     Dosage: UNK
  4. MECLIZINE [Concomitant]
     Indication: DIZZINESS
     Dosage: UNK
  5. PLETAL [Concomitant]
     Indication: CARDIOVASCULAR DISORDER
     Dosage: UNK
  6. METOPROLOL [Concomitant]
     Indication: HEART RATE IRREGULAR
     Dosage: UNK
  7. SIMVASTATIN [Concomitant]
     Indication: BLOOD CHOLESTEROL ABNORMAL
     Dosage: UNK
  8. ACETYLSALICYLIC ACID [Concomitant]
     Indication: CARDIAC DISORDER
     Dosage: UNK
  9. ZOLOFT [Concomitant]
     Indication: DEPRESSION
     Dosage: UNK
  10. LISINOPRIL [Concomitant]
     Dosage: UNK
  11. GABAPENTIN [Concomitant]
     Indication: BACK PAIN
     Dosage: UNK
  12. PRADAXA [Concomitant]
     Indication: BLOOD DISORDER
     Dosage: UNK

REACTIONS (3)
  - MYALGIA [None]
  - DIZZINESS [None]
  - OEDEMA MOUTH [None]
